FAERS Safety Report 12902884 (Version 1)
Quarter: 2016Q4

REPORT INFORMATION
  Report Type: Spontaneous
  Country: US (occurrence: US)
  Receive Date: 20161102
  Receipt Date: 20161102
  Transmission Date: 20170207
  Serious: No
  Sender: FDA-Public Use
  Company Number: US-JNJFOC-20160921393

PATIENT
  Age: 74 Year
  Sex: Male
  Weight: 79 kg

DRUGS (15)
  1. LYSINE [Concomitant]
     Active Substance: LYSINE
     Route: 065
  2. APRISO [Concomitant]
     Active Substance: MESALAMINE
     Route: 065
  3. LOMOTIL [Concomitant]
     Active Substance: ATROPINE SULFATE\DIPHENOXYLATE HYDROCHLORIDE
     Route: 065
  4. COQ [Concomitant]
     Route: 065
  5. VITAMIN B12 [Concomitant]
     Active Substance: CYANOCOBALAMIN
     Route: 065
  6. CLARITIN [Concomitant]
     Active Substance: LORATADINE
     Route: 065
  7. VITAMIN C [Concomitant]
     Active Substance: ASCORBIC ACID
     Route: 065
  8. ZOLOFT [Concomitant]
     Active Substance: SERTRALINE HYDROCHLORIDE
     Route: 065
  9. METOPROLOL. [Concomitant]
     Active Substance: METOPROLOL
     Route: 065
  10. REMICADE [Suspect]
     Active Substance: INFLIXIMAB
     Indication: COLITIS ULCERATIVE
     Route: 042
     Dates: start: 20160614
  11. LASIX [Concomitant]
     Active Substance: FUROSEMIDE
     Route: 065
  12. ALEVE [Concomitant]
     Active Substance: NAPROXEN SODIUM
     Route: 065
  13. REMICADE [Suspect]
     Active Substance: INFLIXIMAB
     Indication: COLITIS ULCERATIVE
     Route: 042
     Dates: start: 20160920, end: 20160920
  14. CALCIUM 600 PLUS VITAMIN D [Concomitant]
     Active Substance: CALCIUM CARBONATE\VITAMIN D
     Route: 065
  15. ZINC [Concomitant]
     Active Substance: ZINC\ZINC CHLORIDE
     Route: 065

REACTIONS (5)
  - Infusion related reaction [Unknown]
  - Anxiety [Recovering/Resolving]
  - Musculoskeletal stiffness [Unknown]
  - Flushing [Recovered/Resolved]
  - Urticaria [Recovered/Resolved]

NARRATIVE: CASE EVENT DATE: 20160920
